FAERS Safety Report 12177858 (Version 2)
Quarter: 2017Q3

REPORT INFORMATION
  Report Type: Spontaneous
  Country: US (occurrence: US)
  Receive Date: 20160315
  Receipt Date: 20170912
  Transmission Date: 20171127
  Serious: No
  Sender: FDA-Public Use
  Company Number: US-ASTRAZENECA-2016SE23605

PATIENT
  Sex: Male

DRUGS (1)
  1. TUDORZA PRESSAIR [Suspect]
     Active Substance: ACLIDINIUM BROMIDE
     Route: 055
     Dates: start: 201602

REACTIONS (7)
  - Nervousness [Unknown]
  - Nasal congestion [Unknown]
  - Incorrect dose administered [Unknown]
  - Device issue [Unknown]
  - Dyspnoea [Unknown]
  - Drug dose omission [Unknown]
  - Malaise [Unknown]
